FAERS Safety Report 16309240 (Version 1)
Quarter: 2019Q2

REPORT INFORMATION
  Report Type: Spontaneous
  Country: US (occurrence: US)
  Receive Date: 20190408
  Receipt Date: 20190408
  Transmission Date: 20190711
  Serious: Yes (Life-Threatening, Disabling)
  Sender: FDA-Public Use
  Company Number: None

PATIENT
  Age: 48 Year
  Sex: Female
  Weight: 66.45 kg

DRUGS (1)
  1. TRESIBA [Suspect]
     Active Substance: INSULIN DEGLUDEC
     Indication: TYPE 1 DIABETES MELLITUS
     Dosage: ?          OTHER FREQUENCY:3-4 X DAY/CARBS;OTHER ROUTE:INJECTION PEN?
     Dates: start: 20181212, end: 20190220

REACTIONS (7)
  - Hypersensitivity [None]
  - Chest pain [None]
  - Vision blurred [None]
  - Drug hypersensitivity [None]
  - Suspected product contamination [None]
  - Muscle spasms [None]
  - Nodule [None]

NARRATIVE: CASE EVENT DATE: 20190214
